FAERS Safety Report 22772013 (Version 2)
Quarter: 2025Q1

REPORT INFORMATION
  Report Type: Spontaneous
  Country: US (occurrence: US)
  Receive Date: 20230801
  Receipt Date: 20250326
  Transmission Date: 20250408
  Serious: Yes (Hospitalization, Other)
  Sender: SANOFI AVENTIS
  Company Number: US-SA-SAC20230731001368

PATIENT
  Age: 71 Year
  Sex: Female
  Weight: 80.2 kg

DRUGS (7)
  1. DUPIXENT [Suspect]
     Active Substance: DUPILUMAB
     Indication: Neurodermatitis
     Dosage: 300 MG, QOW
     Route: 058
     Dates: start: 202306
  2. LATANOPROST [Concomitant]
     Active Substance: LATANOPROST
  3. MOUNJARO [Concomitant]
     Active Substance: TIRZEPATIDE
  4. KETOCONAZOLE [Concomitant]
     Active Substance: KETOCONAZOLE
  5. PREGABALIN [Concomitant]
     Active Substance: PREGABALIN
  6. IBUPROFEN [Concomitant]
     Active Substance: IBUPROFEN
  7. VITAMINS [Concomitant]
     Active Substance: VITAMINS

REACTIONS (2)
  - Spinal fusion surgery [Unknown]
  - Contusion [Recovered/Resolved]

NARRATIVE: CASE EVENT DATE: 20230101
